FAERS Safety Report 5760789-6 (Version None)
Quarter: 2008Q2

REPORT INFORMATION
  Report Type: 
  Country: None (occurrence: None)
  Receive Date: 20080606
  Receipt Date: 20080528
  Transmission Date: 20081010
  Serious: Yes (Other)
  Sender: FDA-Public Use
  Company Number: JP-JNJFOC-20071202074

PATIENT
  Sex: Male
  Weight: 69 kg

DRUGS (14)
  1. ITRIZOLE [Suspect]
     Indication: ONYCHOMYCOSIS
     Route: 048
  2. LASIX [Concomitant]
     Indication: HAEMODIALYSIS
     Route: 048
  3. LASIX [Concomitant]
     Indication: RENAL FAILURE CHRONIC
     Route: 048
  4. CALTAN [Concomitant]
     Indication: HYPERTENSION
     Route: 048
  5. BASEN [Concomitant]
     Indication: DIABETES MELLITUS
     Route: 048
  6. NORVASC [Concomitant]
     Route: 048
  7. NORVASC [Concomitant]
     Indication: HYPERTENSION
     Route: 048
  8. FAMOTIDINE [Concomitant]
     Indication: GASTRIC ULCER
     Route: 048
  9. ALOSENN [Concomitant]
     Indication: CONSTIPATION
     Route: 048
  10. DIOVAN [Concomitant]
     Indication: HYPERTENSION
     Route: 048
  11. ADALAT [Concomitant]
     Indication: HYPERTENSION
     Route: 048
  12. ALLOPURINOL [Concomitant]
     Indication: HYPERURICAEMIA
     Route: 048
  13. PERSELIN [Concomitant]
     Indication: BENIGN PROSTATIC HYPERPLASIA
     Route: 048
  14. CARDENALIN [Concomitant]
     Indication: HYPERTENSION
     Route: 048

REACTIONS (1)
  - ANAEMIA [None]
